FAERS Safety Report 8112497-4 (Version None)
Quarter: 2012Q1

REPORT INFORMATION
  Report Type: 
  Country: None (occurrence: None)
  Receive Date: 20120203
  Receipt Date: 20120124
  Transmission Date: 20120608
  Serious: Yes (Disabling, Other)
  Sender: FDA-Public Use
  Company Number: GB-AMGEN-GBRCT2012002231

PATIENT
  Age: 5 Year
  Sex: Female

DRUGS (1)
  1. ETANERCEPT [Suspect]
     Indication: PRODUCT USED FOR UNKNOWN INDICATION
     Dosage: 14 MG, WEEKLY
     Route: 058
     Dates: start: 20110601

REACTIONS (3)
  - RHEUMATOID ARTHRITIS [None]
  - INJECTION SITE REACTION [None]
  - PRURITUS [None]
